FAERS Safety Report 25913958 (Version 1)
Quarter: 2025Q4

REPORT INFORMATION
  Report Type: Spontaneous
  Country: CN (occurrence: CN)
  Receive Date: 20251013
  Receipt Date: 20251013
  Transmission Date: 20260119
  Serious: Yes (Hospitalization, Other)
  Sender: BAYER HEALTHCARE PHARMACEUTICALS INC.
  Company Number: CN-BAYER-2025A134164

PATIENT
  Age: 74 Year
  Sex: Female
  Weight: 50 kg

DRUGS (2)
  1. GLUCOBAY [Interacting]
     Active Substance: ACARBOSE
     Indication: Diabetes mellitus
     Dosage: 50 MG, TID
     Route: 048
     Dates: start: 20240101, end: 20250926
  2. CALCIUM DOBESILATE [Interacting]
     Active Substance: CALCIUM DOBESILATE
     Indication: Diabetes mellitus
     Dosage: 0.5 G, TID
     Route: 048
     Dates: start: 20240101, end: 20250926

REACTIONS (5)
  - Hypoglycaemic coma [Recovering/Resolving]
  - Blood pressure systolic increased [Recovered/Resolved]
  - Confusional state [Recovered/Resolved]
  - Respiratory rate increased [Not Recovered/Not Resolved]
  - Heart rate decreased [Not Recovered/Not Resolved]

NARRATIVE: CASE EVENT DATE: 20250926
